FAERS Safety Report 12145939 (Version 1)
Quarter: 2016Q1

REPORT INFORMATION
  Report Type: Spontaneous
  Country: IT (occurrence: IT)
  Receive Date: 20160304
  Receipt Date: 20160304
  Transmission Date: 20160526
  Serious: Yes (Other)
  Sender: FDA-Public Use
  Company Number: IT-ROCHE-1720994

PATIENT
  Age: 48 Year
  Sex: Female

DRUGS (6)
  1. NEULASTA [Concomitant]
     Active Substance: PEGFILGRASTIM
     Dosage: 1 X 0.6 ML PRE-FILLED SYRINGE FOR SUBCUTANEOUS USE
     Route: 058
     Dates: start: 20151002, end: 20160302
  2. SOLDESAM [Concomitant]
     Active Substance: DEXAMETHASONE
     Dosage: ^0.2% ORAL DROPS, SOLUTION^
     Route: 048
     Dates: start: 20151001, end: 20160302
  3. TAXOTERE [Suspect]
     Active Substance: DOCETAXEL
     Indication: HER-2 POSITIVE BREAST CANCER
     Dosage: 1 X 4 ML VIAL
     Route: 042
     Dates: start: 20150801, end: 20160204
  4. TARGIN [Concomitant]
     Active Substance: NALOXONE HYDROCHLORIDE\OXYCODONE HYDROCHLORIDE
     Dosage: ^5 MG / 2.5 MG PROLONGED-RELEASE TABLETS^
     Route: 048
     Dates: start: 20151001
  5. PERJETA [Suspect]
     Active Substance: PERTUZUMAB
     Indication: HER-2 POSITIVE BREAST CANCER
     Dosage: 30 MG/ML - 1 VIAL
     Route: 042
     Dates: start: 20150801
  6. HERCEPTIN [Suspect]
     Active Substance: TRASTUZUMAB
     Indication: HER-2 POSITIVE BREAST CANCER
     Dosage: 150 MG 1 VIAL
     Route: 042
     Dates: start: 20150801

REACTIONS (1)
  - Pulmonary mass [Not Recovered/Not Resolved]

NARRATIVE: CASE EVENT DATE: 20151222
